FAERS Safety Report 5614441-8 (Version None)
Quarter: 2008Q1

REPORT INFORMATION
  Report Type: 
  Country: None (occurrence: None)
  Receive Date: 20080130
  Receipt Date: 20080125
  Transmission Date: 20080703
  Serious: Yes (Life-Threatening, Other)
  Sender: FDA-Public Use
  Company Number: 2008S1000022

PATIENT
  Age: 56 Year
  Sex: Male
  Weight: 133 kg

DRUGS (11)
  1. NITRIC OXIDE [Suspect]
     Indication: VENTRICULAR ASSIST DEVICE INSERTION
     Dosage: 4 PPM; CONT; INH
     Route: 055
     Dates: start: 20080124, end: 20080124
  2. HEPARIN [Concomitant]
  3. SUPRARENIN INJ [Concomitant]
  4. PROPOFOL [Concomitant]
  5. RANITIDINE [Concomitant]
  6. CEFAZOLIN [Concomitant]
  7. ETOMIDATE [Concomitant]
  8. SUFENTANIL CITRATE [Concomitant]
  9. PANCURONIUM [Concomitant]
  10. MILRINONE [Concomitant]
  11. DIMETINDENE MALEATE [Concomitant]

REACTIONS (2)
  - BLOOD PRESSURE DECREASED [None]
  - CENTRAL VENOUS PRESSURE INCREASED [None]
